FAERS Safety Report 17458751 (Version 2)
Quarter: 2020Q2

REPORT INFORMATION
  Report Type: Report from Study
  Country: US (occurrence: US)
  Receive Date: 20200225
  Receipt Date: 20200406
  Transmission Date: 20200713
  Serious: Yes (Hospitalization)
  Sender: FDA-Public Use
  Company Number: US-ACTELION-A-NJ2018-169633

PATIENT
  Sex: Male
  Weight: 114.29 kg

DRUGS (6)
  1. OPSUMIT [Suspect]
     Active Substance: MACITENTAN
     Indication: PULMONARY ARTERIAL HYPERTENSION
     Dosage: 10 MG, QD
     Route: 048
  2. ADEMPAS [Concomitant]
     Active Substance: RIOCIGUAT
  3. TORSEMIDE. [Concomitant]
     Active Substance: TORSEMIDE
  4. OPSUMIT [Suspect]
     Active Substance: MACITENTAN
     Dosage: 10 MG, QD
     Route: 048
  5. FUROSEMIDE. [Concomitant]
     Active Substance: FUROSEMIDE
  6. AMLODIPINE [Concomitant]
     Active Substance: AMLODIPINE BESYLATE

REACTIONS (13)
  - Eructation [Unknown]
  - Wheezing [Unknown]
  - Headache [Unknown]
  - Musculoskeletal discomfort [Unknown]
  - Nasal congestion [Unknown]
  - Cough [Unknown]
  - Weight increased [Unknown]
  - Toothache [Unknown]
  - Lower respiratory tract infection [Unknown]
  - Blood testosterone decreased [Unknown]
  - Anaemia [Unknown]
  - Blood iron decreased [Unknown]
  - Pulmonary hypertension [Unknown]
